FAERS Safety Report 7719045-9 (Version None)
Quarter: 2011Q3

REPORT INFORMATION
  Report Type: 
  Country: None (occurrence: None)
  Receive Date: 20110830
  Receipt Date: 20110823
  Transmission Date: 20111222
  Serious: Yes (Other)
  Sender: FDA-Public Use
  Company Number: US-BAXTER-2011BH027606

PATIENT
  Age: 26 Year
  Sex: Female

DRUGS (4)
  1. DIPYRIDAMOLE [Concomitant]
     Indication: ANTIPLATELET THERAPY
     Route: 048
  2. WARFARIN SODIUM [Concomitant]
     Indication: COAGULOPATHY
     Route: 065
  3. HEPARIN SODIUM INJECTION [Suspect]
     Indication: COAGULOPATHY
     Route: 065
  4. ASPIRIN [Concomitant]
     Indication: ANTIPLATELET THERAPY
     Route: 048

REACTIONS (6)
  - RIGHT VENTRICULAR DYSFUNCTION [None]
  - MITRAL VALVE INCOMPETENCE [None]
  - MATERNAL EXPOSURE DURING PREGNANCY [None]
  - VAGINAL HAEMORRHAGE [None]
  - VENTRICULAR INTERNAL DIAMETER ABNORMAL [None]
  - PREMATURE LABOUR [None]
